FAERS Safety Report 21110779 (Version 1)
Quarter: 2022Q3

REPORT INFORMATION
  Report Type: Spontaneous
  Country: US (occurrence: None)
  Receive Date: 20220720
  Receipt Date: 20220720
  Transmission Date: 20221027
  Serious: Yes (Other)
  Sender: FDA-Public Use
  Company Number: None

PATIENT
  Age: 65 Year
  Sex: Female
  Weight: 85.5 kg

DRUGS (6)
  1. PAXLOVID [Suspect]
     Active Substance: NIRMATRELVIR\RITONAVIR
     Indication: SARS-CoV-2 test positive
     Dosage: FREQUENCY : TWICE A DAY;?
     Route: 048
     Dates: start: 20220712, end: 20220714
  2. MAXZIDE [Concomitant]
     Active Substance: HYDROCHLOROTHIAZIDE\TRIAMTERENE
  3. BUSPAR [Concomitant]
     Active Substance: BUSPIRONE HYDROCHLORIDE
  4. VIT C [Concomitant]
  5. Elderberry [Concomitant]
  6. VIT D [Concomitant]

REACTIONS (6)
  - Dysphonia [None]
  - Vomiting [None]
  - Mouth swelling [None]
  - Lip swelling [None]
  - Nausea [None]
  - Tooth dislocation [None]

NARRATIVE: CASE EVENT DATE: 20220713
